FAERS Safety Report 7226900-5 (Version None)
Quarter: 2011Q1

REPORT INFORMATION
  Report Type: 
  Country: None (occurrence: None)
  Receive Date: 20110114
  Receipt Date: 20101229
  Transmission Date: 20110831
  Serious: No
  Sender: FDA-Public Use
  Company Number: US-B.I. PHARMACEUTICALS,INC./RIDGEFIELD-2010-BP-13395BP

PATIENT
  Age: 86 Year
  Sex: Female
  Weight: 66.2 kg

DRUGS (4)
  1. PRADAXA [Suspect]
     Indication: ATRIAL FIBRILLATION
     Dosage: 300 MG
     Route: 048
     Dates: start: 20101122
  2. ASPIRIN [Concomitant]
     Dosage: 81 MG
     Dates: start: 20090105
  3. MULLOQ [Concomitant]
     Dosage: 800 MG
     Dates: start: 20100104
  4. TOPROL-XL [Concomitant]
     Dosage: 50 MG
     Dates: start: 20090105

REACTIONS (2)
  - FACIAL PAIN [None]
  - MYALGIA [None]
